FAERS Safety Report 16263744 (Version 1)
Quarter: 2019Q2

REPORT INFORMATION
  Report Type: Spontaneous
  Country: IT (occurrence: IT)
  Receive Date: 20190502
  Receipt Date: 20190502
  Transmission Date: 20190711
  Serious: Yes (Other)
  Sender: FDA-Public Use
  Company Number: IT-JNJFOC-20180408238

PATIENT

DRUGS (2)
  1. INFLIXIMAB RECOMBINANT [Suspect]
     Active Substance: INFLIXIMAB
     Indication: COLITIS ULCERATIVE
     Route: 042
  2. GOLIMUMAB [Suspect]
     Active Substance: GOLIMUMAB
     Indication: COLITIS ULCERATIVE
     Route: 058

REACTIONS (11)
  - Neoplasm malignant [Unknown]
  - Arthralgia [Unknown]
  - Adverse event [Unknown]
  - Pharyngitis [Unknown]
  - Therapeutic product effect decreased [Unknown]
  - Skin reaction [Unknown]
  - Treatment failure [Unknown]
  - Infection [Unknown]
  - Herpes virus infection [Unknown]
  - Infusion related reaction [Unknown]
  - Psoriasis [Unknown]
